FAERS Safety Report 4677901-2 (Version None)
Quarter: 2005Q2

REPORT INFORMATION
  Report Type: 
  Country: None (occurrence: None)
  Receive Date: 20050531
  Receipt Date: 20050527
  Transmission Date: 20051028
  Serious: Yes (Life-Threatening)
  Sender: FDA-Public Use
  Company Number: FR-GLAXOSMITHKLINE-B0382482A

PATIENT
  Age: 27 Year
  Sex: Female

DRUGS (2)
  1. AUGMENTIN '125' [Suspect]
     Route: 050
     Dates: start: 20040901
  2. CLAMOXYL [Suspect]
     Dosage: 144MG CUMULATIVE DOSE
     Route: 048

REACTIONS (18)
  - ANAPHYLACTIC SHOCK [None]
  - BLOOD PRESSURE SYSTOLIC DECREASED [None]
  - CONJUNCTIVITIS [None]
  - DYSPHONIA [None]
  - EYE PRURITUS [None]
  - FACE OEDEMA [None]
  - GENITAL PRURITUS FEMALE [None]
  - HEART RATE DECREASED [None]
  - LOSS OF CONSCIOUSNESS [None]
  - OCULAR HYPERAEMIA [None]
  - PALPITATIONS [None]
  - PARAESTHESIA ORAL [None]
  - PRURITUS [None]
  - RHINITIS [None]
  - SNEEZING [None]
  - TACHYCARDIA [None]
  - URTICARIA GENERALISED [None]
  - VOMITING [None]
